FAERS Safety Report 7595446-7 (Version None)
Quarter: 2011Q3

REPORT INFORMATION
  Report Type: 
  Country: None (occurrence: None)
  Receive Date: 20110707
  Receipt Date: 20110627
  Transmission Date: 20111222
  Serious: Yes (Hospitalization)
  Sender: FDA-Public Use
  Company Number: IT-ROCHE-786063

PATIENT

DRUGS (3)
  1. BEVACIZUMAB [Suspect]
     Route: 065
  2. CAPECITABINE [Concomitant]
     Route: 065
  3. ZOMETA [Concomitant]

REACTIONS (4)
  - NAUSEA [None]
  - VOMITING [None]
  - ABDOMINAL DISTENSION [None]
  - HEPATOMEGALY [None]
